FAERS Safety Report 9124383 (Version 2)
Quarter: 2013Q2

REPORT INFORMATION
  Report Type: Spontaneous
  Country: BR (occurrence: BR)
  Receive Date: 20130227
  Receipt Date: 20130401
  Transmission Date: 20140414
  Serious: Yes (Other)
  Sender: FDA-Public Use
  Company Number: PHHY2013BR017966

PATIENT
  Sex: Female
  Weight: 70 kg

DRUGS (5)
  1. TEGRETOL CR [Suspect]
     Indication: TRIGEMINAL NEURALGIA
     Dosage: 2 OR 3 DF, A DAY
     Route: 048
  2. EUTHYROX [Concomitant]
     Indication: HYPOTHYROIDISM
     Dosage: 1 DF, A DAY
     Route: 048
  3. ZANIDIP [Concomitant]
     Indication: BLOOD PRESSURE
     Dosage: 1 DF, A DAY
     Route: 048
  4. ATENOLOL [Concomitant]
     Indication: BLOOD PRESSURE
     Dosage: 1 DF, QD
     Route: 048
  5. RIVOTRIL [Concomitant]
     Indication: FEELING OF RELAXATION
     Dosage: 2 DF, A DAY
     Route: 048

REACTIONS (9)
  - Transient ischaemic attack [Recovering/Resolving]
  - Facial asymmetry [Recovered/Resolved]
  - Abasia [Recovered/Resolved]
  - Intervertebral disc protrusion [Recovered/Resolved]
  - Spinal disorder [Not Recovered/Not Resolved]
  - Osteoarthritis [Not Recovered/Not Resolved]
  - Arthritis [Not Recovered/Not Resolved]
  - Carotid artery disease [Recovering/Resolving]
  - Osteoporosis [Not Recovered/Not Resolved]
